FAERS Safety Report 22012205 (Version 2)
Quarter: 2023Q1

REPORT INFORMATION
  Report Type: Spontaneous
  Country: US (occurrence: None)
  Receive Date: 20230220
  Receipt Date: 20230228
  Transmission Date: 20230418
  Serious: No
  Sender: FDA-Public Use
  Company Number: 2023A022141

PATIENT
  Age: 860 Month
  Sex: Male
  Weight: 79.4 kg

DRUGS (1)
  1. CALQUENCE [Suspect]
     Active Substance: ACALABRUTINIB
     Indication: Leukaemia
     Route: 048
     Dates: start: 2020

REACTIONS (9)
  - Alopecia [Not Recovered/Not Resolved]
  - Urticaria [Not Recovered/Not Resolved]
  - Acrochordon [Unknown]
  - Skin discolouration [Unknown]
  - Skin disorder [Unknown]
  - COVID-19 [Unknown]
  - Rash erythematous [Unknown]
  - Product dose omission in error [Unknown]
  - Intentional product misuse [Not Recovered/Not Resolved]

NARRATIVE: CASE EVENT DATE: 20221201
